FAERS Safety Report 7202116-3 (Version None)
Quarter: 2010Q4

REPORT INFORMATION
  Report Type: 
  Country: None (occurrence: None)
  Receive Date: 20101229
  Receipt Date: 20101215
  Transmission Date: 20110411
  Serious: Yes (Hospitalization)
  Sender: FDA-Public Use
  Company Number: US-CELGENEUS-163-21880-10121696

PATIENT
  Sex: Male

DRUGS (1)
  1. REVLIMID [Suspect]
     Route: 048
     Dates: start: 20101201, end: 20100101

REACTIONS (3)
  - CONFUSIONAL STATE [None]
  - DELIRIUM [None]
  - STAPHYLOCOCCAL INFECTION [None]
